FAERS Safety Report 13643470 (Version 1)
Quarter: 2017Q2

REPORT INFORMATION
  Report Type: Spontaneous
  Country: US (occurrence: US)
  Receive Date: 20170612
  Receipt Date: 20170612
  Transmission Date: 20170830
  Serious: Yes (Other)
  Sender: FDA-Public Use
  Company Number: US-AMGEN-USASP2017087045

PATIENT
  Sex: Male

DRUGS (1)
  1. ENBREL [Suspect]
     Active Substance: ETANERCEPT
     Indication: PSORIASIS
     Dosage: 50 MG, QWK
     Route: 065
     Dates: start: 2014, end: 201704

REACTIONS (5)
  - Platelet count increased [Unknown]
  - Viral upper respiratory tract infection [Unknown]
  - Neutrophil count abnormal [Unknown]
  - White blood cell count increased [Unknown]
  - Haematochezia [Unknown]

NARRATIVE: CASE EVENT DATE: 201704
